FAERS Safety Report 4439396-3 (Version None)
Quarter: 2004Q3

REPORT INFORMATION
  Report Type: 
  Country: None (occurrence: None)
  Receive Date: 20040901
  Receipt Date: 20030929
  Transmission Date: 20050211
  Serious: Yes (Hospitalization)
  Sender: FDA-Public Use
  Company Number: US-MERCK-0310USA00441

PATIENT
  Age: 49 Year
  Sex: Female
  Weight: 80 kg

DRUGS (11)
  1. LORTAB [Concomitant]
     Indication: PAIN
     Route: 065
  2. ALBUTEROL [Concomitant]
     Route: 065
  3. PROVENTIL [Concomitant]
     Route: 055
  4. CELEBREX [Concomitant]
     Route: 065
     Dates: start: 19990401
  5. MICARDIS HCT [Concomitant]
     Route: 065
  6. SULAR [Concomitant]
     Indication: HYPERTENSION
     Route: 065
  7. SULAR [Concomitant]
     Route: 048
  8. VIOXX [Suspect]
     Indication: PAIN
     Route: 048
     Dates: start: 19990101, end: 19990801
  9. VIOXX [Suspect]
     Route: 048
     Dates: start: 19990801, end: 19990801
  10. VIOXX [Suspect]
     Route: 048
     Dates: start: 19990801, end: 20010101
  11. MICARDIS [Concomitant]
     Route: 065

REACTIONS (45)
  - ABDOMINAL DISCOMFORT [None]
  - ANAEMIA [None]
  - ARRHYTHMIA [None]
  - ASTHENIA [None]
  - ASTHMA [None]
  - BLOOD PRESSURE INCREASED [None]
  - CARPAL TUNNEL SYNDROME [None]
  - CHEST DISCOMFORT [None]
  - CHEST PAIN [None]
  - CHRONIC FATIGUE SYNDROME [None]
  - CYST [None]
  - DIZZINESS [None]
  - DRUG INEFFECTIVE [None]
  - DYSPNOEA [None]
  - EMOTIONAL DISTRESS [None]
  - HYPERLIPIDAEMIA [None]
  - HYPERTENSION [None]
  - HYPOAESTHESIA [None]
  - HYPOKALAEMIA [None]
  - INFLUENZA [None]
  - INTERVERTEBRAL DISC DEGENERATION [None]
  - INTERVERTEBRAL DISC PROTRUSION [None]
  - JOINT SWELLING [None]
  - LARGE INTESTINAL ULCER HAEMORRHAGE [None]
  - LOSS OF CONSCIOUSNESS [None]
  - MENISCUS LESION [None]
  - MUSCULOSKELETAL DISCOMFORT [None]
  - NASOPHARYNGITIS [None]
  - NAUSEA [None]
  - NECK PAIN [None]
  - NEUROPATHY PERIPHERAL [None]
  - OEDEMA [None]
  - OESOPHAGEAL ULCER HAEMORRHAGE [None]
  - OSTEOARTHRITIS [None]
  - PAIN IN EXTREMITY [None]
  - PARAESTHESIA [None]
  - POST PROCEDURAL NAUSEA [None]
  - POST PROCEDURAL PAIN [None]
  - ROAD TRAFFIC ACCIDENT [None]
  - SPINAL DISORDER [None]
  - SPONDYLOSIS [None]
  - STOMACH DISCOMFORT [None]
  - STRABISMUS [None]
  - UPPER RESPIRATORY TRACT INFECTION [None]
  - VITAMIN B12 DEFICIENCY [None]
